FAERS Safety Report 10092578 (Version 1)
Quarter: 2014Q2

REPORT INFORMATION
  Report Type: Spontaneous
  Country: US (occurrence: US)
  Receive Date: 20140421
  Receipt Date: 20140421
  Transmission Date: 20141212
  Serious: No
  Sender: FDA-Public Use
  Company Number: US-SANOFI-AVENTIS-2013SA057746

PATIENT
  Age: 32 Year
  Sex: Male

DRUGS (2)
  1. ALLEGRA [Suspect]
     Indication: SEASONAL ALLERGY
     Dosage: TAKEN FROM- 1 YEAR AGO, FREQUENCY-DAILY OR EVERY OTHER DAY
     Route: 065
  2. TYLENOL [Suspect]
     Route: 065

REACTIONS (2)
  - Wrong drug administered [Unknown]
  - Extra dose administered [Unknown]
